FAERS Safety Report 7120581-7 (Version None)
Quarter: 2010Q4

REPORT INFORMATION
  Report Type: 
  Country: None (occurrence: None)
  Receive Date: 20101124
  Receipt Date: 20101110
  Transmission Date: 20110411
  Serious: Yes (Hospitalization, Other)
  Sender: FDA-Public Use
  Company Number: US-CELGENEUS-163-21880-10101598

PATIENT
  Sex: Male

DRUGS (8)
  1. REVLIMID [Suspect]
     Route: 048
     Dates: start: 20090427
  2. REVLIMID [Suspect]
     Route: 048
     Dates: start: 20090713
  3. HUMALOG [Concomitant]
     Route: 065
  4. EPO [Concomitant]
     Dosage: 90,000
     Route: 065
  5. LASIX [Concomitant]
     Route: 065
  6. ADVAIR DISKUS 100/50 [Concomitant]
     Route: 065
  7. COZAAR [Concomitant]
     Route: 065
  8. COZAAR [Concomitant]

REACTIONS (6)
  - BLOOD CREATININE INCREASED [None]
  - CARDIAC FAILURE [None]
  - DRUG DOSE OMISSION [None]
  - HAEMOGLOBIN DECREASED [None]
  - LOBAR PNEUMONIA [None]
  - SEPSIS [None]
